FAERS Safety Report 18232343 (Version 1)
Quarter: 2020Q3

REPORT INFORMATION
  Report Type: Spontaneous
  Country: US (occurrence: US)
  Receive Date: 20200904
  Receipt Date: 20200904
  Transmission Date: 20201103
  Serious: Yes (Other)
  Sender: FDA-Public Use
  Company Number: None

PATIENT
  Age: 71 Year
  Sex: Female
  Weight: 47.7 kg

DRUGS (3)
  1. DIPHENHYDRAMINE 50 MG PO [Concomitant]
     Dates: start: 20200814, end: 20200814
  2. GAMMAGARD [Suspect]
     Active Substance: HUMAN IMMUNOGLOBULIN G
     Indication: HYPOGAMMAGLOBULINAEMIA
     Dosage: ?          OTHER FREQUENCY:Q4W;?
     Route: 042
     Dates: start: 20200814, end: 20200814
  3. ACETAMINOPHEN 650 MG PO [Concomitant]
     Dates: start: 20200814, end: 20200814

REACTIONS (6)
  - Infusion related reaction [None]
  - Fatigue [None]
  - Dyspepsia [None]
  - Arthralgia [None]
  - Infusion [None]
  - Chills [None]

NARRATIVE: CASE EVENT DATE: 20200814
